FAERS Safety Report 6026306-0 (Version None)
Quarter: 2008Q4

REPORT INFORMATION
  Report Type: 
  Country: None (occurrence: None)
  Receive Date: 20081229
  Receipt Date: 20081216
  Transmission Date: 20090506
  Serious: Yes (Hospitalization)
  Sender: FDA-Public Use
  Company Number: 0321

PATIENT
  Age: 29 Year
  Sex: Female

DRUGS (2)
  1. METHYLDOPA [Suspect]
     Indication: PROPHYLAXIS
     Dosage: 500 MG/250 MG, PO
     Route: 048
     Dates: start: 20080917, end: 20080924
  2. METHYLDOPA [Suspect]
     Indication: PROPHYLAXIS
     Dosage: 500 MG/250 MG, PO
     Route: 048
     Dates: start: 20080925, end: 20081117

REACTIONS (3)
  - GASTROINTESTINAL DISORDER [None]
  - HEPATITIS [None]
  - MALAISE [None]
